FAERS Safety Report 9999140 (Version 1)
Quarter: 2014Q1

REPORT INFORMATION
  Report Type: Spontaneous
  Country: FR (occurrence: FR)
  Receive Date: 20140312
  Receipt Date: 20140312
  Transmission Date: 20141002
  Serious: Yes (Other)
  Sender: FDA-Public Use
  Company Number: FR-JNJFOC-20140302077

PATIENT
  Sex: Female

DRUGS (1)
  1. RISPERDAL ORO [Suspect]
     Indication: PRODUCT USED FOR UNKNOWN INDICATION
     Route: 048

REACTIONS (4)
  - Asphyxia [Unknown]
  - Fatigue [Unknown]
  - Speech disorder [Unknown]
  - Bruxism [Unknown]
